FAERS Safety Report 6684560-6 (Version None)
Quarter: 2010Q2

REPORT INFORMATION
  Report Type: 
  Country: None (occurrence: None)
  Receive Date: 20100416
  Receipt Date: 20100407
  Transmission Date: 20101027
  Serious: Yes (Other)
  Sender: FDA-Public Use
  Company Number: US-JNJFOC-20100108627

PATIENT
  Age: 50 Year
  Sex: Female
  Weight: 58.06 kg

DRUGS (4)
  1. MOTRIN IB [Suspect]
     Route: 048
  2. MOTRIN IB [Suspect]
     Indication: PROPHYLAXIS
     Route: 048
  3. MICARDIS [Concomitant]
     Indication: BLOOD PRESSURE
  4. BYSTOLIC [Concomitant]
     Indication: HYPERTENSION

REACTIONS (3)
  - ANAPHYLACTIC SHOCK [None]
  - INCORRECT DOSE ADMINISTERED [None]
  - PRODUCT QUALITY ISSUE [None]
